FAERS Safety Report 4666758-1 (Version None)
Quarter: 2005Q2

REPORT INFORMATION
  Report Type: 
  Country: None (occurrence: None)
  Receive Date: 20050517
  Receipt Date: 20050428
  Transmission Date: 20051028
  Serious: Yes (Other)
  Sender: FDA-Public Use
  Company Number: 603500

PATIENT
  Age: 14 Year
  Sex: Male

DRUGS (4)
  1. RECOMBINATE [Suspect]
     Indication: FACTOR VIII DEFICIENCY
     Dates: start: 19990101
  2. HAEMATE HS (FACTOR VIII (ANTIHAEMOPHILIC FACTOR)) [Suspect]
     Indication: FACTOR VIII DEFICIENCY
     Dates: start: 19930101, end: 19930101
  3. BERIATE HS (FACTOR VIII (ANTIHAEMOPHILIC FACTOR)) [Suspect]
     Indication: FACTOR VIII DEFICIENCY
     Dosage: 1000 IU;
     Dates: start: 19931016, end: 19981010
  4. KOATE [Suspect]
     Indication: FACTOR VIII DEFICIENCY
     Dates: start: 19920714, end: 19920723

REACTIONS (1)
  - FACTOR VIII INHIBITION [None]
